FAERS Safety Report 9041017 (Version 1)
Quarter: 2013Q1

REPORT INFORMATION
  Report Type: Spontaneous
  Country: US (occurrence: None)
  Receive Date: 20130123
  Receipt Date: 20130123
  Transmission Date: 20140127
  Serious: Yes (Other)
  Sender: FDA-Public Use
  Company Number: None

PATIENT
  Age: 64 Year
  Sex: Female
  Weight: 56.7 kg

DRUGS (1)
  1. ALENDRONATE SODIUM (FOSAMAX) [Suspect]
     Indication: OSTEOPOROSIS
     Dosage: 70 MG.  ONCE A WEEK  ORAL?12/17
     Route: 048

REACTIONS (6)
  - Dizziness [None]
  - Pollakiuria [None]
  - Arthralgia [None]
  - Urticaria [None]
  - Bone pain [None]
  - Spinal pain [None]
